FAERS Safety Report 8307286-1 (Version None)
Quarter: 2012Q1

REPORT INFORMATION
  Report Type: 
  Country: None (occurrence: None)
  Receive Date: 20120327
  Receipt Date: 20090727
  Transmission Date: 20120608
  Serious: Yes (Death)
  Sender: FDA-Public Use
  Company Number: PHEH2008US11584

PATIENT
  Age: 61 Year
  Sex: Female

DRUGS (8)
  1. SUTENT [Concomitant]
  2. SORAFENIB (SORAFENIB) [Concomitant]
  3. GLEEVEC [Suspect]
     Indication: CHRONIC MYELOID LEUKAEMIA
     Dosage: 800 MG, QD, ORAL
     Route: 048
     Dates: start: 20050601, end: 20070301
  4. GLEEVEC [Suspect]
     Indication: GASTROINTESTINAL STROMAL TUMOUR
     Dosage: 800 MG, QD, ORAL
     Route: 048
     Dates: start: 20050601, end: 20070301
  5. GLEEVEC [Suspect]
     Indication: CHRONIC MYELOID LEUKAEMIA
     Dosage: 800 MG, QD, ORAL
     Route: 048
     Dates: start: 20080301, end: 20080601
  6. GLEEVEC [Suspect]
     Indication: GASTROINTESTINAL STROMAL TUMOUR
     Dosage: 800 MG, QD, ORAL
     Route: 048
     Dates: start: 20080301, end: 20080601
  7. GLEEVEC [Suspect]
     Indication: CHRONIC MYELOID LEUKAEMIA
     Dosage: 800 MG, QD, ORAL
     Route: 048
     Dates: start: 20070901, end: 20080101
  8. GLEEVEC [Suspect]
     Indication: GASTROINTESTINAL STROMAL TUMOUR
     Dosage: 800 MG, QD, ORAL
     Route: 048
     Dates: start: 20070901, end: 20080101

REACTIONS (4)
  - GASTROINTESTINAL CANCER METASTATIC [None]
  - NEOPLASM MALIGNANT [None]
  - RENAL FAILURE [None]
  - HEPATIC FAILURE [None]
